FAERS Safety Report 5915564-6 (Version None)
Quarter: 2008Q4

REPORT INFORMATION
  Report Type: 
  Country: None (occurrence: None)
  Receive Date: 20081010
  Receipt Date: 20080814
  Transmission Date: 20090506
  Serious: No
  Sender: FDA-Public Use
  Company Number: A0742639A

PATIENT
  Age: 86 Year
  Sex: Female

DRUGS (4)
  1. TYKERB [Suspect]
     Indication: BREAST CANCER
     Dosage: 4TAB PER DAY
     Route: 048
     Dates: start: 20080101
  2. AVAPRO [Concomitant]
  3. OMACOR [Concomitant]
  4. BUPROPION HCL [Concomitant]

REACTIONS (2)
  - ALOPECIA [None]
  - PAIN [None]
